FAERS Safety Report 9292952 (Version 1)
Quarter: 2013Q2

REPORT INFORMATION
  Report Type: Spontaneous
  Country: US (occurrence: US)
  Receive Date: 20130516
  Receipt Date: 20130516
  Transmission Date: 20140414
  Serious: Yes (Hospitalization)
  Sender: FDA-Public Use
  Company Number: US-009507513-1305USA006412

PATIENT
  Age: 31 Year
  Sex: Female

DRUGS (3)
  1. SAPHRIS [Suspect]
     Dosage: 20 MG, QD
     Dates: start: 201301
  2. LITHIUM [Concomitant]
  3. LAMICTAL [Concomitant]

REACTIONS (1)
  - Weight increased [Unknown]
